FAERS Safety Report 19206370 (Version 1)
Quarter: 2021Q2

REPORT INFORMATION
  Report Type: Spontaneous
  Country: FR (occurrence: FR)
  Receive Date: 20210503
  Receipt Date: 20210503
  Transmission Date: 20210717
  Serious: Yes (Hospitalization)
  Sender: FDA-Public Use
  Company Number: FR-TEVA-2021-FR-1905985

PATIENT
  Age: 74 Year
  Sex: Male

DRUGS (10)
  1. GEMCITABINE. [Suspect]
     Active Substance: GEMCITABINE
     Indication: PANCREATIC CARCINOMA METASTATIC
     Dosage: 2ND CURE 40 MG / ML, ON D1, ROUTE OF ADMINISTRATION: INTRAVENOUS INFUSION, 250 ML
     Route: 041
     Dates: start: 20210406
  2. KARDEGIC [Concomitant]
     Active Substance: ASPIRIN DL-LYSINE
  3. LIPTRUZET [Concomitant]
     Active Substance: ATORVASTATIN CALCIUM\EZETIMIBE
  4. OXALIPLATINE [Suspect]
     Active Substance: OXALIPLATIN
     Indication: PANCREATIC CARCINOMA METASTATIC
     Dosage: 2ND COURSE, 5 MG / ML, ROUTE OF ADMINISTRATION: INTRAVENOUS INFUSION, 250 ML
     Route: 041
     Dates: start: 20210406
  5. METFORMINE [Concomitant]
     Active Substance: METFORMIN HYDROCHLORIDE
  6. INNOHEP [Concomitant]
     Active Substance: TINZAPARIN SODIUM
  7. BISOPROLOL [Concomitant]
     Active Substance: BISOPROLOL
  8. AMLOR [Concomitant]
     Active Substance: AMLODIPINE BESYLATE
  9. VICTOZA [Concomitant]
     Active Substance: LIRAGLUTIDE
  10. TELMISARTAN. [Concomitant]
     Active Substance: TELMISARTAN

REACTIONS (1)
  - Cardiac failure [Recovering/Resolving]

NARRATIVE: CASE EVENT DATE: 20210407
